FAERS Safety Report 5847292-X (Version None)
Quarter: 2008Q3

REPORT INFORMATION
  Report Type: 
  Country: None (occurrence: None)
  Receive Date: 20080731
  Receipt Date: 20080502
  Transmission Date: 20090109
  Serious: No
  Sender: FDA-Public Use
  Company Number: US200805000910

PATIENT
  Age: 54 Year
  Sex: Female
  Weight: 91.2 kg

DRUGS (9)
  1. BYETTA [Suspect]
     Indication: TYPE 2 DIABETES MELLITUS
     Dosage: 5 UG, 2/D, SUBCUTANEOUS ; 10 UG, 2/D, SUBCUTANEOUS
     Route: 058
     Dates: start: 20070401, end: 20070601
  2. BYETTA [Suspect]
     Indication: TYPE 2 DIABETES MELLITUS
     Dosage: 5 UG, 2/D, SUBCUTANEOUS ; 10 UG, 2/D, SUBCUTANEOUS
     Route: 058
     Dates: start: 20070601
  3. GLUCOTROL [Concomitant]
  4. DRUG USED IN DIABETES [Concomitant]
  5. GLIPIZIDE [Concomitant]
  6. ANTIBIOTICS [Concomitant]
  7. TETRACYCLINE [Concomitant]
  8. SILVADENE (SULFADIAZINE SILVER) [Concomitant]
  9. NEOSPORIN /USA/ (BACITRACIN ZINC, NEOMYCIN SULFATE, POLYMYXIN B SULFAT [Concomitant]

REACTIONS (3)
  - BLOOD GLUCOSE INCREASED [None]
  - TOOTH DISORDER [None]
  - VOMITING [None]
